FAERS Safety Report 9777659 (Version 1)
Quarter: 2013Q4

REPORT INFORMATION
  Report Type: Spontaneous
  Country: GB (occurrence: GB)
  Receive Date: 20131223
  Receipt Date: 20131223
  Transmission Date: 20140711
  Serious: Yes (Disabling)
  Sender: FDA-Public Use
  Company Number: GB-AMGEN-GBRSP2013089458

PATIENT
  Age: 69 Year
  Sex: Female
  Weight: 66.4 kg

DRUGS (5)
  1. ENBREL [Suspect]
     Indication: PRODUCT USED FOR UNKNOWN INDICATION
     Dosage: UNK
     Route: 065
     Dates: start: 20131206
  2. LEFLUNOMIDE [Concomitant]
     Dosage: UNK
     Dates: start: 20130816, end: 20131124
  3. CO-DYDRAMOL [Concomitant]
     Dosage: UNK
     Dates: start: 20130903, end: 20131101
  4. DIAZEPAM [Concomitant]
     Dosage: UNK
     Dates: start: 20131014, end: 20131016
  5. CODEINE PHOSPHATE [Concomitant]
     Dosage: UNK
     Dates: start: 20131021

REACTIONS (1)
  - Injection site erythema [Recovering/Resolving]
